FAERS Safety Report 9701440 (Version 2)
Quarter: 2013Q4

REPORT INFORMATION
  Report Type: Spontaneous
  Country: US (occurrence: US)
  Receive Date: 20131121
  Receipt Date: 20131121
  Transmission Date: 20140711
  Serious: No
  Sender: FDA-Public Use
  Company Number: US-GILEAD-2008-0016625

PATIENT
  Sex: Female
  Weight: 109.77 kg

DRUGS (9)
  1. LETAIRIS [Suspect]
     Indication: PULMONARY ARTERIAL HYPERTENSION
     Route: 048
     Dates: start: 20080501
  2. CITALOPRAM [Concomitant]
     Route: 048
  3. PLAQUENIL [Concomitant]
     Route: 048
  4. PREDNISONE [Concomitant]
     Route: 048
  5. IBUPROFEN [Concomitant]
     Route: 048
  6. LEVOTHYROXINE [Concomitant]
     Route: 048
  7. LASIX [Concomitant]
     Route: 048
  8. PRILOSEC [Concomitant]
     Route: 048
  9. POTASSIUM CHLORIDE [Concomitant]
     Route: 048

REACTIONS (4)
  - Pain in extremity [Unknown]
  - Nightmare [Unknown]
  - Headache [Unknown]
  - Nasal congestion [Unknown]
